FAERS Safety Report 7490262-9 (Version None)
Quarter: 2011Q2

REPORT INFORMATION
  Report Type: 
  Country: None (occurrence: None)
  Receive Date: 20110512
  Receipt Date: 20110505
  Transmission Date: 20111010
  Serious: Yes (Hospitalization, Other)
  Sender: FDA-Public Use
  Company Number: ACO_24038_2011

PATIENT
  Age: 65 Year
  Sex: Male

DRUGS (2)
  1. AMPYRA [Suspect]
     Indication: PRODUCT USED FOR UNKNOWN INDICATION
  2. REBIF [Suspect]
     Indication: PRODUCT USED FOR UNKNOWN INDICATION
     Dosage: 44 ?G, 3 IN 1 WK, SUBCUTANEOUS
     Route: 058
     Dates: start: 20080725

REACTIONS (6)
  - GRAND MAL CONVULSION [None]
  - NAUSEA [None]
  - PROGRESSIVE MULTIPLE SCLEROSIS [None]
  - THERAPEUTIC RESPONSE UNEXPECTED [None]
  - MULTIPLE SCLEROSIS RELAPSE [None]
  - DECREASED APPETITE [None]
